FAERS Safety Report 8487770-0 (Version None)
Quarter: 2012Q3

REPORT INFORMATION
  Report Type: 
  Country: None (occurrence: None)
  Receive Date: 20120705
  Receipt Date: 20120628
  Transmission Date: 20120928
  Serious: Yes (Other)
  Sender: FDA-Public Use
  Company Number: NO-PFIZER INC-2012113896

PATIENT
  Sex: Male
  Weight: 102.6 kg

DRUGS (17)
  1. ESIDRIX [Concomitant]
     Indication: OEDEMA
  2. ENALAPRIL MALEATE [Concomitant]
     Indication: HYPERTENSION
     Dosage: 20 MG, 1X/DAY
  3. METOPROLOL SUCCINATE [Concomitant]
     Indication: HYPERTENSION
     Dosage: 100 MG, 2X/DAY FOR HYPERTENSION
  4. METFORMIN WEIFA [Concomitant]
     Indication: DIABETES MELLITUS
     Dosage: 500 MG, 2X/DAY
  5. PANTOPRAZOLE [Concomitant]
     Indication: OESOPHAGEAL DISORDER
     Dosage: 40 MG, 1X/DAY
  6. METOPROLOL SUCCINATE [Concomitant]
     Indication: HEART RATE INCREASED
     Dosage: 50 MG, AS NEEDED FOR HIGH PULSE RATE
  7. SIMVASTATIN [Concomitant]
     Dosage: 20 MG, 1X/DAY
  8. IRBESARTAN [Concomitant]
     Indication: HYPERTENSION
     Dosage: 300 MG, 1X/DAY
  9. ALLOPUR [Concomitant]
     Indication: GOUT
     Dosage: 100 -200 MG 2X/DAY
  10. TOVIAZ [Suspect]
     Dosage: UNK
  11. ESIDRIX [Concomitant]
     Indication: HYPERTENSION
     Dosage: 12.5 MG, 1X/DAY
  12. DIGITOXIN [Concomitant]
     Dosage: 50 UG, 2 TABLETS DAILY 4 DAY A WEEK, 1 TABLET 3 DAYS
  13. ADALAT [Concomitant]
     Indication: HYPERTENSION
     Dosage: 60 MG, 2X/DAY
  14. MAREVAN ^NYCOMED^ [Concomitant]
     Indication: ANTICOAGULANT THERAPY
     Dosage: 2.5 MG, UNK
  15. DIAZEPAM [Concomitant]
     Indication: SEDATIVE THERAPY
     Dosage: 5 MG, 1 TABLET AS NEEDED
  16. FUROSEMIDE [Concomitant]
     Indication: HYPERTENSION
     Dosage: 20 MG, 1X/DAY
  17. IMOVANE [Concomitant]
     Indication: SLEEP DISORDER
     Dosage: 1 TABLET AS NEEDED

REACTIONS (4)
  - URINARY RETENTION [None]
  - WEIGHT INCREASED [None]
  - MICTURITION DISORDER [None]
  - GENERALISED OEDEMA [None]
